FAERS Safety Report 23766850 (Version 2)
Quarter: 2024Q2

REPORT INFORMATION
  Report Type: Spontaneous
  Country: FR (occurrence: FR)
  Receive Date: 20240422
  Receipt Date: 20240516
  Transmission Date: 20240716
  Serious: Yes (Hospitalization, Other)
  Sender: FDA-Public Use
  Company Number: None

PATIENT
  Age: 2 Year
  Sex: Female
  Weight: 12.6 kg

DRUGS (16)
  1. ALBUMIN HUMAN [Suspect]
     Active Substance: ALBUMIN HUMAN
     Indication: Hypogammaglobulinaemia
     Dosage: 13 G, TOT
     Route: 042
     Dates: start: 20240226, end: 20240226
  2. DEXTROSE [Concomitant]
     Active Substance: DEXTROSE\DEXTROSE MONOHYDRATE
     Dosage: 1 DF, CYCLICAL
     Route: 042
     Dates: start: 20240220
  3. SODIUM CHLORIDE [Concomitant]
     Active Substance: SODIUM CHLORIDE
     Dosage: VARIABLE
     Route: 042
     Dates: start: 20240220, end: 20240229
  4. VITAMIN K [Concomitant]
     Active Substance: PHYTONADIONE
     Dosage: 10 MG, QD
     Route: 042
     Dates: start: 20240226, end: 20240228
  5. MORPHINE [Suspect]
     Active Substance: MORPHINE
     Indication: Pain
     Dosage: 30 MG, QD
     Route: 042
     Dates: start: 20240222, end: 20240305
  6. METHOTREXATE [Concomitant]
     Active Substance: METHOTREXATE
     Dosage: 10 MG, CYCLICAL
     Route: 037
     Dates: start: 20240223, end: 20240223
  7. NALBUPHINE HYDROCHLORIDE [Suspect]
     Active Substance: NALBUPHINE HYDROCHLORIDE
     Indication: Pain
     Dosage: 3 MG, QD
     Route: 042
     Dates: start: 20240223, end: 20240304
  8. NALBUPHINE HYDROCHLORIDE [Suspect]
     Active Substance: NALBUPHINE HYDROCHLORIDE
     Dosage: 2.5 MG, QD
     Route: 042
     Dates: start: 20240220, end: 20240220
  9. ALFACALCIDOL [Suspect]
     Active Substance: ALFACALCIDOL
     Indication: Vitamin supplementation
     Dosage: 0.2 ?G, QD
     Route: 048
     Dates: start: 20240227, end: 20240228
  10. CEFOTAXIME [Suspect]
     Active Substance: CEFOTAXIME SODIUM
     Indication: Pyelonephritis
     Dosage: 1260 MG, QD
     Route: 042
     Dates: start: 20240222, end: 20240302
  11. FUROSEMIDE [Suspect]
     Active Substance: FUROSEMIDE
     Indication: Polyuria
     Dosage: 25 MG, QD
     Route: 042
     Dates: start: 20240220, end: 20240227
  12. VINCRISTINE SULFATE [Concomitant]
     Active Substance: VINCRISTINE SULFATE
     Dosage: 0.8 MG, CYCLICAL
     Route: 042
     Dates: start: 20240223
  13. FASTURTEC [Suspect]
     Active Substance: RASBURICASE
     Indication: Prophylaxis
     Dosage: 2.5 MG, QD
     Route: 042
     Dates: start: 20240222, end: 20240225
  14. CHOLECALCIFEROL [Suspect]
     Active Substance: CHOLECALCIFEROL
     Indication: Vitamin supplementation
     Dosage: 30000 IU, QD
     Route: 048
     Dates: start: 20240226, end: 20240228
  15. ACETAMINOPHEN [Suspect]
     Active Substance: ACETAMINOPHEN
     Indication: Pain
     Dosage: 190 MG, QD (IF REQUIRED)
     Route: 042
     Dates: start: 20240220, end: 20240229
  16. DEXAMETHASONE [Suspect]
     Active Substance: DEXAMETHASONE
     Indication: Acute lymphocytic leukaemia
     Dosage: 3.2 MG, QD
     Route: 042
     Dates: start: 20240223, end: 20240229

REACTIONS (2)
  - Pancreatitis acute [Recovered/Resolved]
  - Off label use [Unknown]

NARRATIVE: CASE EVENT DATE: 20240229
